FAERS Safety Report 8572468-0 (Version None)
Quarter: 2012Q3

REPORT INFORMATION
  Report Type: 
  Country: None (occurrence: None)
  Receive Date: 20120806
  Receipt Date: 20120730
  Transmission Date: 20120928
  Serious: Yes (Hospitalization)
  Sender: FDA-Public Use
  Company Number: US-ROCHE-1088308

PATIENT
  Sex: Female
  Weight: 106.3 kg

DRUGS (25)
  1. ACETAMINOPHEN [Concomitant]
     Dates: start: 20120518, end: 20120518
  2. ACETAMINOPHEN [Concomitant]
     Route: 048
     Dates: start: 20120509, end: 20120509
  3. METRONIDAZOLE [Concomitant]
     Dosage: SINGLE DOSE
     Route: 042
     Dates: start: 20120527, end: 20120527
  4. ACETAMINOPHEN [Concomitant]
     Route: 048
     Dates: start: 20120522, end: 20120522
  5. ACETAMINOPHEN [Concomitant]
     Route: 048
     Dates: start: 20120531, end: 20120601
  6. IBUPROFEN [Concomitant]
     Route: 048
     Dates: start: 20120525, end: 20120526
  7. KETOCONAZOLE [Concomitant]
     Route: 061
     Dates: start: 20120515
  8. HYDROCORTISONE [Concomitant]
     Dates: start: 20120515
  9. ACETAMINOPHEN [Concomitant]
     Dosage: SINGLE DOSE
     Route: 048
     Dates: start: 20120516, end: 20120517
  10. MORPHINE [Concomitant]
     Route: 048
     Dates: start: 20120601, end: 20120602
  11. ZELBORAF [Suspect]
     Indication: MALIGNANT MELANOMA
     Dosage: MOST RECENT DOSE PRIOR TO SAE ON 06/JUL/2012
     Route: 048
     Dates: start: 20120416
  12. OMEPRAZOLE [Concomitant]
     Route: 048
     Dates: start: 20120426
  13. ACETAMINOPHEN [Concomitant]
     Route: 048
     Dates: start: 20120507, end: 20120508
  14. ACETAMINOPHEN [Concomitant]
     Dosage: SINGLE DOSE
     Route: 048
     Dates: start: 20120511, end: 20120511
  15. IBUPROFEN [Concomitant]
     Route: 048
     Dates: start: 20120524, end: 20120524
  16. BACTRIM [Concomitant]
     Route: 048
     Dates: start: 20120522, end: 20120526
  17. ACETAMINOPHEN [Concomitant]
     Route: 048
     Dates: start: 20120510, end: 20120510
  18. ACETAMINOPHEN [Concomitant]
     Route: 048
     Dates: start: 20120519, end: 20120521
  19. ACETAMINOPHEN [Concomitant]
     Route: 048
     Dates: start: 20120523, end: 20120526
  20. ACETAMINOPHEN [Concomitant]
     Dosage: SINGLE DOSE
     Route: 048
     Dates: start: 20120527, end: 20120527
  21. IBUPROFEN [Concomitant]
     Dosage: SINGLE DOSE
     Route: 048
     Dates: start: 20120527, end: 20120527
  22. IBUPROFEN [Concomitant]
     Route: 048
     Dates: start: 20120621, end: 20120704
  23. ROCEPHIN [Concomitant]
     Dosage: SINGLE DOSE
     Route: 042
     Dates: start: 20120527, end: 20120527
  24. LIDOCAINE AND EPINEPHRINE [Concomitant]
     Dosage: 1:1000,000 ML ; SINGLE DOSE
     Route: 030
     Dates: start: 20120515, end: 20120515
  25. BENADRYL [Concomitant]
     Route: 048
     Dates: start: 20120426

REACTIONS (1)
  - OCULAR ISCHAEMIC SYNDROME [None]
